FAERS Safety Report 5892373-8 (Version None)
Quarter: 2008Q3

REPORT INFORMATION
  Report Type: 
  Country: None (occurrence: None)
  Receive Date: 20080918
  Receipt Date: 20080918
  Transmission Date: 20090109
  Serious: Yes (Hospitalization, Disabling, Other)
  Sender: FDA-Public Use
  Company Number: None

PATIENT
  Sex: Male
  Weight: 54.4316 kg

DRUGS (1)
  1. HALOPERIDOL LACTATE [Suspect]
     Indication: AGITATION
     Dosage: 1 MG 6 HRS IV
     Route: 042
     Dates: start: 20080907, end: 20080908

REACTIONS (10)
  - ACTIVITIES OF DAILY LIVING IMPAIRED [None]
  - ASTHENIA [None]
  - CATHETER SITE PAIN [None]
  - CRYING [None]
  - GAIT DISTURBANCE [None]
  - INJURY [None]
  - MOVEMENT DISORDER [None]
  - PARKINSONISM [None]
  - TARDIVE DYSKINESIA [None]
  - VASCULAR INJURY [None]
